FAERS Safety Report 6775660-0 (Version None)
Quarter: 2010Q2

REPORT INFORMATION
  Report Type: 
  Country: None (occurrence: None)
  Receive Date: 20100617
  Receipt Date: 20100613
  Transmission Date: 20101027
  Serious: Yes (Death, Hospitalization, Other)
  Sender: FDA-Public Use
  Company Number: US-CEPHALON-2010001751

PATIENT
  Sex: Female
  Weight: 70 kg

DRUGS (2)
  1. TREANDA [Suspect]
     Indication: CHRONIC LYMPHOCYTIC LEUKAEMIA
     Route: 042
     Dates: start: 20100218, end: 20100219
  2. PREDNISONE [Concomitant]

REACTIONS (5)
  - HEPATIC FAILURE [None]
  - HYPERBILIRUBINAEMIA [None]
  - PANCYTOPENIA [None]
  - PYREXIA [None]
  - STAPHYLOCOCCAL INFECTION [None]
